FAERS Safety Report 6997428-2 (Version None)
Quarter: 2010Q3

REPORT INFORMATION
  Report Type: 
  Country: None (occurrence: None)
  Receive Date: 20100918
  Receipt Date: 20091007
  Transmission Date: 20110219
  Serious: No
  Sender: FDA-Public Use
  Company Number: US-WYE-H11480909

PATIENT
  Sex: Female
  Weight: 86.26 kg

DRUGS (7)
  1. PRISTIQ [Suspect]
     Indication: DEPRESSION
     Route: 048
     Dates: start: 20090101, end: 20090801
  2. PRISTIQ [Suspect]
     Route: 048
     Dates: start: 20090801, end: 20090101
  3. PRISTIQ [Suspect]
     Route: 048
     Dates: start: 20090101
  4. WELLBUTRIN [Concomitant]
  5. ZANTAC [Concomitant]
  6. CYTOMEL [Concomitant]
  7. TRIAMTERENE AND HYDROCHLOROTHIAZIDE [Concomitant]

REACTIONS (3)
  - BLOOD PRESSURE INCREASED [None]
  - HEADACHE [None]
  - OEDEMA [None]
